FAERS Safety Report 20763574 (Version 2)
Quarter: 2022Q3

REPORT INFORMATION
  Report Type: Spontaneous
  Country: JP (occurrence: JP)
  Receive Date: 20220428
  Receipt Date: 20220720
  Transmission Date: 20221027
  Serious: Yes (Death, Other)
  Sender: FDA-Public Use
  Company Number: JP-NBI-J202205107BIPI

PATIENT
  Age: 78 Year
  Sex: Male

DRUGS (5)
  1. IDARUCIZUMAB [Suspect]
     Active Substance: IDARUCIZUMAB
     Indication: Procoagulant therapy
     Route: 042
     Dates: start: 20210716, end: 20210716
  2. IDARUCIZUMAB [Suspect]
     Active Substance: IDARUCIZUMAB
     Route: 042
     Dates: start: 20210826, end: 20210826
  3. EDOXABAN TOSYLATE [Concomitant]
     Active Substance: EDOXABAN TOSYLATE
     Indication: Product used for unknown indication
     Route: 048
     Dates: end: 20210708
  4. EDOXABAN TOSYLATE [Concomitant]
     Active Substance: EDOXABAN TOSYLATE
     Route: 048
     Dates: start: 20210716, end: 20210819
  5. EDOXABAN TOSYLATE [Concomitant]
     Active Substance: EDOXABAN TOSYLATE
     Route: 048
     Dates: start: 20210827

REACTIONS (1)
  - Pneumonia aspiration [Fatal]
